FAERS Safety Report 24026101 (Version 1)
Quarter: 2024Q2

REPORT INFORMATION
  Report Type: Spontaneous
  Country: FR (occurrence: FR)
  Receive Date: 20240628
  Receipt Date: 20240628
  Transmission Date: 20240716
  Serious: No
  Sender: FDA-Public Use
  Company Number: FR-ROCHE-3520241

PATIENT
  Sex: Female

DRUGS (1)
  1. ALECENSA [Suspect]
     Active Substance: ALECTINIB HYDROCHLORIDE
     Indication: Lung cancer metastatic
     Dosage: ACLECTINIB (ALECENSA) 4 TABS OF 150 MG IN THE MORNING AND 4 TABS OF 150 MG IN THE EVENING
     Route: 065
     Dates: start: 20231222

REACTIONS (1)
  - Maternal exposure during pregnancy [Unknown]
